FAERS Safety Report 7800063-7 (Version None)
Quarter: 2011Q4

REPORT INFORMATION
  Report Type: 
  Country: None (occurrence: None)
  Receive Date: 20111006
  Receipt Date: 20110928
  Transmission Date: 20120403
  Serious: Yes (Other)
  Sender: FDA-Public Use
  Company Number: US-BAYER-2011-070603

PATIENT
  Age: 37 Year
  Sex: Female
  Weight: 98.866 kg

DRUGS (1)
  1. MIRENA [Suspect]
     Indication: CONTRACEPTION
     Dosage: 20 MCG/24HR, CONT
     Route: 015
     Dates: start: 20110718, end: 20110718

REACTIONS (2)
  - DEVICE DIFFICULT TO USE [None]
  - POST PROCEDURAL HAEMORRHAGE [None]
